FAERS Safety Report 5407897-7 (Version None)
Quarter: 2007Q3

REPORT INFORMATION
  Report Type: 
  Country: None (occurrence: None)
  Receive Date: 20070803
  Receipt Date: 20070726
  Transmission Date: 20080115
  Serious: Yes (Hospitalization)
  Sender: FDA-Public Use
  Company Number: ABLAL-07-0650

PATIENT
  Age: 49 Year
  Sex: Female

DRUGS (6)
  1. ABRAXANE [Suspect]
     Indication: BREAST CANCER METASTATIC
     Dosage: 225 MG/M2 INTRAVENOUS
     Route: 042
     Dates: start: 20070711
  2. NEULASTA [Concomitant]
  3. ZOMETA [Concomitant]
  4. ALTACE [Concomitant]
  5. DOXIL [Concomitant]
  6. GEMZAAR (GEMCITABINE HYDROCHLORIDE) [Concomitant]

REACTIONS (7)
  - DRUG INTERACTION [None]
  - DRUG TOXICITY [None]
  - MUCOSAL INFLAMMATION [None]
  - NEUTROPENIA [None]
  - PALMAR-PLANTAR ERYTHRODYSAESTHESIA SYNDROME [None]
  - RECALL PHENOMENON [None]
  - WHITE BLOOD CELL COUNT DECREASED [None]
